FAERS Safety Report 21167223 (Version 1)
Quarter: 2022Q3

REPORT INFORMATION
  Report Type: Spontaneous
  Country: CN (occurrence: CN)
  Receive Date: 20220803
  Receipt Date: 20220803
  Transmission Date: 20221027
  Serious: Yes (Hospitalization)
  Sender: FDA-Public Use
  Company Number: CN-009507513-2208CHN000472

PATIENT
  Age: 60 Year
  Sex: Male
  Weight: 68 kg

DRUGS (6)
  1. KEYTRUDA [Suspect]
     Active Substance: PEMBROLIZUMAB
     Indication: Abdominal neoplasm
     Dosage: 200MG, 1 TIME IN ONE DAY (ALSO REPORTED AS ST)
     Route: 041
     Dates: start: 20220705, end: 20220705
  2. PACLITAXEL [Suspect]
     Active Substance: PACLITAXEL
     Indication: Chemotherapy
     Dosage: 180MG, 1 TIME IN ONE DAY (ALSO REPORTED AS ST)
     Route: 041
     Dates: start: 20220705, end: 20220705
  3. OXALIPLATIN [Suspect]
     Active Substance: OXALIPLATIN
     Indication: Chemotherapy
     Dosage: 150MG, 1 TIME IN ONE DAY (ALSO REPORTED AS ST)
     Route: 041
     Dates: start: 20220705, end: 20220705
  4. DEXTROSE [Concomitant]
     Active Substance: DEXTROSE
     Indication: Medication dilution
     Dosage: 250 ML, 1 TIME IN ONE DAY (ALSO REPORTED AS ST)
     Route: 041
     Dates: start: 20220705, end: 20220705
  5. DEXTROSE [Concomitant]
     Active Substance: DEXTROSE
     Dosage: 500 ML, 1 TIME IN ONE DAY (ALSO REPORTED AS ST)
     Route: 041
     Dates: start: 20220705, end: 20220705
  6. SODIUM CHLORIDE [Concomitant]
     Active Substance: SODIUM CHLORIDE
     Indication: Medication dilution
     Dosage: 100 ML, 1 TIME IN ONE DAY (ALSO REPORTED AS ST)
     Route: 041
     Dates: start: 20220705, end: 20220705

REACTIONS (1)
  - Full blood count decreased [Recovering/Resolving]

NARRATIVE: CASE EVENT DATE: 20220709
